FAERS Safety Report 8925660 (Version 2)
Quarter: 2013Q1

REPORT INFORMATION
  Report Type: Spontaneous
  Country: US (occurrence: US)
  Receive Date: 20121126
  Receipt Date: 20130111
  Transmission Date: 20140127
  Serious: Yes (Life-Threatening, Hospitalization, Other)
  Sender: FDA-Public Use
  Company Number: US-BRISTOL-MYERS SQUIBB COMPANY-17136078

PATIENT
  Sex: 0

DRUGS (6)
  1. ABILIFY [Suspect]
  2. PERCOCET [Interacting]
     Indication: PAIN
     Dosage: UP TO 10MG/D, 10/325MG TWO TABLETS AS NEEDED
  3. DEPAKOTE [Interacting]
  4. PAXIL [Interacting]
     Dosage: LOW DOSE,TAPERED TO 10MG
  5. KLONOPIN [Interacting]
     Dosage: LOW DOSE
  6. OXYCONTIN [Interacting]
     Indication: PAIN

REACTIONS (8)
  - Overdose [Unknown]
  - Respiratory depression [Unknown]
  - Brain injury [Unknown]
  - Drug interaction [Unknown]
  - Upper respiratory tract infection [Unknown]
  - Facial bones fracture [Unknown]
  - Pneumonia aspiration [Unknown]
  - Mania [Unknown]
